FAERS Safety Report 11056027 (Version 1)
Quarter: 2015Q2

REPORT INFORMATION
  Report Type: Report from Study
  Country: CA (occurrence: CA)
  Receive Date: 20150422
  Receipt Date: 20150422
  Transmission Date: 20150821
  Serious: Yes (Other)
  Sender: FDA-Public Use
  Company Number: CA-ASTRAZENECA-2015SE35130

PATIENT
  Age: 62 Year
  Sex: Female
  Weight: 70 kg

DRUGS (12)
  1. LOSEC [Suspect]
     Active Substance: OMEPRAZOLE
     Indication: PRODUCT USED FOR UNKNOWN INDICATION
     Route: 048
  2. CLINDAMYCIN [Suspect]
     Active Substance: CLINDAMYCIN\CLINDAMYCIN PHOSPHATE
     Indication: TOOTH INFECTION
     Route: 065
  3. AERIUS [Concomitant]
     Active Substance: DESLORATADINE
  4. ARTHROTEC [Concomitant]
     Active Substance: DICLOFENAC SODIUM\MISOPROSTOL
     Indication: RHEUMATOID ARTHRITIS
  5. NADOLOL. [Concomitant]
     Active Substance: NADOLOL
     Indication: TREMOR
  6. METHOTREXATE [Concomitant]
     Active Substance: METHOTREXATE
     Indication: RHEUMATOID ARTHRITIS
  7. NASONEX [Concomitant]
     Active Substance: MOMETASONE FUROATE
     Dosage: INTRA-NASAL
  8. ACTEMRA [Suspect]
     Active Substance: TOCILIZUMAB
     Indication: RHEUMATOID ARTHRITIS
     Dosage: 280.0 MILLIGRAM 1 EVERY 1MONTH
     Route: 042
  9. ACTEMRA [Suspect]
     Active Substance: TOCILIZUMAB
     Indication: RHEUMATOID ARTHRITIS
     Dosage: 560.0 MILLIGRAM 1 EVERY 1MONTH
     Route: 042
  10. FOLIC ACID. [Concomitant]
     Active Substance: FOLIC ACID
  11. METHYLPREDNISOLONE SODIUM SUCCINATE. [Concomitant]
     Active Substance: METHYLPREDNISOLONE SODIUM SUCCINATE
     Dosage: 40 MG
  12. BUDESONIDE/FORMOTEROL FUMARATE [Concomitant]
     Active Substance: BUDESONIDE\FORMOTEROL
     Indication: ASTHMA

REACTIONS (15)
  - Drug hypersensitivity [Unknown]
  - Drug effect decreased [Unknown]
  - Rash [Unknown]
  - Bacterial infection [Unknown]
  - Blood pressure increased [Unknown]
  - Chest pain [Unknown]
  - Tooth infection [Unknown]
  - Abdominal pain upper [Unknown]
  - Burning sensation [Unknown]
  - Haemorrhoidal haemorrhage [Unknown]
  - Hepatic pain [Unknown]
  - Productive cough [Unknown]
  - Pain in jaw [Unknown]
  - Back pain [Unknown]
  - Headache [Unknown]
